FAERS Safety Report 8317428-X (Version None)
Quarter: 2012Q2

REPORT INFORMATION
  Report Type: 
  Country: None (occurrence: None)
  Receive Date: 20120427
  Receipt Date: 20120424
  Transmission Date: 20120825
  Serious: No
  Sender: FDA-Public Use
  Company Number: US-PFIZER INC-2012063334

PATIENT
  Sex: Female

DRUGS (2)
  1. NEURONTIN [Suspect]
     Dosage: UNK
  2. LYRICA [Suspect]
     Dosage: UNK

REACTIONS (2)
  - HEARING IMPAIRED [None]
  - PAIN [None]
